FAERS Safety Report 15842031 (Version 3)
Quarter: 2019Q1

REPORT INFORMATION
  Report Type: Spontaneous
  Country: US (occurrence: US)
  Receive Date: 20190118
  Receipt Date: 20190208
  Transmission Date: 20190417
  Serious: Yes (Other)
  Sender: FDA-Public Use
  Company Number: US-ASTRAZENECA-2019SE06315

PATIENT
  Age: 74 Year
  Sex: Male
  Weight: 92.5 kg

DRUGS (4)
  1. TUDORZA PRESSAIR [Suspect]
     Active Substance: ACLIDINIUM BROMIDE
     Indication: CHRONIC OBSTRUCTIVE PULMONARY DISEASE
     Dosage: 400 MCG ONE PUFF TWICE A DAY
     Route: 055
     Dates: start: 20190108
  2. LOVASTATIN. [Concomitant]
     Active Substance: LOVASTATIN
     Indication: BLOOD PRESSURE ABNORMAL
  3. SYMBICORT [Suspect]
     Active Substance: BUDESONIDE\FORMOTEROL FUMARATE DIHYDRATE
     Indication: CHRONIC OBSTRUCTIVE PULMONARY DISEASE
     Dosage: 160/4.5 MCG ONE PUFF TWICE A DAY
     Route: 055
     Dates: end: 20190107
  4. LOVASTATIN. [Concomitant]
     Active Substance: LOVASTATIN
     Indication: ANTICOAGULANT THERAPY

REACTIONS (14)
  - Colon cancer [Unknown]
  - Productive cough [Not Recovered/Not Resolved]
  - Dysphonia [Recovering/Resolving]
  - Circumstance or information capable of leading to medication error [Unknown]
  - Off label use [Recovered/Resolved]
  - Oropharyngeal pain [Recovering/Resolving]
  - Intentional device misuse [Not Recovered/Not Resolved]
  - Device malfunction [Unknown]
  - Drug ineffective [Unknown]
  - Visual impairment [Not Recovered/Not Resolved]
  - Product dose omission [Unknown]
  - Cataract [Recovered/Resolved]
  - Bronchitis [Recovering/Resolving]
  - Feeling abnormal [Unknown]

NARRATIVE: CASE EVENT DATE: 2016
